FAERS Safety Report 8094004-8 (Version None)
Quarter: 2012Q1

REPORT INFORMATION
  Report Type: 
  Country: None (occurrence: None)
  Receive Date: 20120131
  Receipt Date: 20120125
  Transmission Date: 20120608
  Serious: Yes (Death, Other)
  Sender: FDA-Public Use
  Company Number: PHEH2012US001782

PATIENT
  Sex: Male

DRUGS (1)
  1. ZOMETA [Suspect]
     Dates: start: 20110818

REACTIONS (8)
  - LUNG CANCER METASTATIC [None]
  - PLATELET COUNT INCREASED [None]
  - VIITH NERVE PARALYSIS [None]
  - METASTASES TO BONE [None]
  - METASTASES TO LIVER [None]
  - RESPIRATORY RATE DECREASED [None]
  - MALAISE [None]
  - HAEMOGLOBIN DECREASED [None]
